FAERS Safety Report 7220321-7 (Version None)
Quarter: 2011Q1

REPORT INFORMATION
  Report Type: 
  Country: None (occurrence: None)
  Receive Date: 20110111
  Receipt Date: 20110104
  Transmission Date: 20110831
  Serious: Yes (Hospitalization)
  Sender: FDA-Public Use
  Company Number: US-BRACCO-005777

PATIENT
  Sex: Female

DRUGS (2)
  1. ISOVUE-M [Suspect]
     Indication: SPINAL MYELOGRAM
     Route: 037
     Dates: start: 20101214, end: 20101214
  2. ISOVUE-M [Suspect]
     Indication: BACK PAIN
     Route: 037
     Dates: start: 20101214, end: 20101214

REACTIONS (4)
  - DEHYDRATION [None]
  - NAUSEA [None]
  - VOMITING [None]
  - HEADACHE [None]
